FAERS Safety Report 19799171 (Version 2)
Quarter: 2021Q4

REPORT INFORMATION
  Report Type: Report from Study
  Country: GB (occurrence: GB)
  Receive Date: 20210907
  Receipt Date: 20211012
  Transmission Date: 20220303
  Serious: Yes (Other)
  Sender: FDA-Public Use
  Company Number: GB-KYOWAKIRIN-2021BKK014908

PATIENT

DRUGS (1)
  1. POTELIGEO [Suspect]
     Active Substance: MOGAMULIZUMAB-KPKC
     Indication: Cutaneous T-cell lymphoma stage III
     Dosage: 1 MG/KG, WEEKLY IN CYCLE 1 AND AT TWO-WEEK INTERVALS THEREAFTER, 14 CYCLES
     Route: 042

REACTIONS (6)
  - Respiratory tract infection [Unknown]
  - Deep vein thrombosis [Unknown]
  - Lethargy [Unknown]
  - Vision blurred [Unknown]
  - Diarrhoea [Unknown]
  - Fatigue [Unknown]
